FAERS Safety Report 9196540 (Version 2)
Quarter: 2013Q2

REPORT INFORMATION
  Report Type: Report from Study
  Country: JP (occurrence: JP)
  Receive Date: 20130328
  Receipt Date: 20130411
  Transmission Date: 20140414
  Serious: No
  Sender: FDA-Public Use
  Company Number: JP-PFIZER INC-2013094846

PATIENT
  Age: 65 Year
  Sex: Male
  Weight: 81.9 kg

DRUGS (2)
  1. XALKORI [Suspect]
     Indication: NON-SMALL CELL LUNG CANCER
     Dosage: 250 MG, 2X/DAY
     Route: 048
     Dates: start: 20130130, end: 20130213
  2. XALKORI [Suspect]
     Dosage: 250 MG, 2X/DAY
     Route: 048
     Dates: start: 20130306, end: 20130321

REACTIONS (2)
  - Renal impairment [Recovering/Resolving]
  - Hepatic function abnormal [Recovered/Resolved]
